FAERS Safety Report 21241966 (Version 1)
Quarter: 2022Q3

REPORT INFORMATION
  Report Type: Spontaneous
  Country: CA (occurrence: CA)
  Receive Date: 20220823
  Receipt Date: 20220823
  Transmission Date: 20221027
  Serious: Yes (Other)
  Sender: FDA-Public Use
  Company Number: CA-SUN PHARMACEUTICAL INDUSTRIES LTD-2020R1-242800

PATIENT
  Age: 52 Year
  Sex: Female

DRUGS (2)
  1. ACETAZOLAMIDE [Suspect]
     Active Substance: ACETAZOLAMIDE
     Indication: Idiopathic intracranial hypertension
     Dosage: 2500 MILLIGRAM, DAILY
     Route: 065
  2. ACETAZOLAMIDE [Suspect]
     Active Substance: ACETAZOLAMIDE
     Dosage: 500-750 MILLIGRAM
     Route: 065

REACTIONS (4)
  - Pneumonia [Unknown]
  - Hypoventilation [Unknown]
  - Respiratory failure [Unknown]
  - Chronic obstructive pulmonary disease [Unknown]
